FAERS Safety Report 6168878-1 (Version None)
Quarter: 2009Q2

REPORT INFORMATION
  Report Type: 
  Country: None (occurrence: None)
  Receive Date: 20090427
  Receipt Date: 20090414
  Transmission Date: 20091009
  Serious: Yes (Hospitalization, Other)
  Sender: FDA-Public Use
  Company Number: US-ROCHE-512806

PATIENT
  Sex: Male
  Weight: 68 kg

DRUGS (2)
  1. ACCUTANE [Suspect]
     Route: 065
     Dates: start: 20020510, end: 20020927
  2. PREDNISONE [Suspect]
     Indication: CROHN'S DISEASE
     Dosage: PATIENT WAS ON PREDNISONE TAPER
     Route: 065
     Dates: start: 20050930, end: 20051201

REACTIONS (10)
  - ACNE [None]
  - ANXIETY [None]
  - BLOOD ALBUMIN DECREASED [None]
  - BLOOD CHOLESTEROL INCREASED [None]
  - CROHN'S DISEASE [None]
  - DEPRESSION [None]
  - HIGH DENSITY LIPOPROTEIN DECREASED [None]
  - INFLAMMATORY BOWEL DISEASE [None]
  - INGUINAL HERNIA [None]
  - SMALL INTESTINAL OBSTRUCTION [None]
